FAERS Safety Report 16373103 (Version 1)
Quarter: 2019Q2

REPORT INFORMATION
  Report Type: Spontaneous
  Country: US (occurrence: US)
  Receive Date: 20190530
  Receipt Date: 20190530
  Transmission Date: 20190711
  Serious: Yes (Other)
  Sender: FDA-Public Use
  Company Number: US-BAYER-2019-101095

PATIENT
  Sex: Male
  Weight: 79 kg

DRUGS (1)
  1. COPPERTONE SPORT FREE SPF 50 [Suspect]
     Active Substance: AVOBENZONE\HOMOSALATE\OCTISALATE\OCTOCRYLENE
     Indication: THERAPEUTIC SKIN CARE TOPICAL
     Dosage: UNK
     Route: 061
     Dates: start: 20190518, end: 20190518

REACTIONS (6)
  - Chemical burn of skin [Unknown]
  - Application site cellulitis [None]
  - Application site erythema [Unknown]
  - Skin disorder [Unknown]
  - Application site pain [Unknown]
  - Expired product administered [Unknown]

NARRATIVE: CASE EVENT DATE: 20190518
